FAERS Safety Report 6054385-3 (Version None)
Quarter: 2009Q1

REPORT INFORMATION
  Report Type: 
  Country: None (occurrence: None)
  Receive Date: 20090127
  Receipt Date: 20090115
  Transmission Date: 20090719
  Serious: Yes (Other)
  Sender: FDA-Public Use
  Company Number: CZ-PFIZER INC-2009157788

PATIENT

DRUGS (2)
  1. DOSTINEX [Suspect]
     Indication: HYPERPROLACTINAEMIA
     Dosage: 0.25 MG, WEEKLY
     Route: 048
     Dates: start: 20050101
  2. UTROGESTAN [Concomitant]
     Route: 048

REACTIONS (2)
  - BLOOD PROLACTIN INCREASED [None]
  - INTRA-UTERINE DEATH [None]
